FAERS Safety Report 16720585 (Version 1)
Quarter: 2019Q4

REPORT INFORMATION
  Report Type: Spontaneous
  Country: US (occurrence: US)
  Receive Date: 20190819
  Receipt Date: 20190819
  Transmission Date: 20200122
  Serious: Yes (Death)
  Sender: FDA-Public Use
  Company Number: None

PATIENT
  Age: 72 Year
  Sex: Male
  Weight: 112.95 kg

DRUGS (8)
  1. HYDROCODONE [Concomitant]
     Active Substance: HYDROCODONE
  2. MAGNESIUM [Concomitant]
     Active Substance: MAGNESIUM
  3. TRAMADOL. [Concomitant]
     Active Substance: TRAMADOL
  4. ERIVEDGE [Suspect]
     Active Substance: VISMODEGIB
     Indication: BASAL CELL CARCINOMA
     Route: 048
  5. GABAPENTIN. [Concomitant]
     Active Substance: GABAPENTIN
  6. VITAMIN D [Concomitant]
     Active Substance: VITAMIN D NOS
  7. ALLOPURINOL. [Concomitant]
     Active Substance: ALLOPURINOL
  8. NAPROXEN. [Concomitant]
     Active Substance: NAPROXEN

REACTIONS (1)
  - Death [None]

NARRATIVE: CASE EVENT DATE: 20190726
